FAERS Safety Report 24776569 (Version 1)
Quarter: 2024Q4

REPORT INFORMATION
  Report Type: Spontaneous
  Country: US (occurrence: US)
  Receive Date: 20241226
  Receipt Date: 20241226
  Transmission Date: 20250115
  Serious: Yes (Hospitalization)
  Sender: BRISTOL-MYERS SQUIBB COMPANY
  Company Number: US-BRISTOL-MYERS SQUIBB COMPANY-2024-195473

PATIENT
  Age: 74 Year
  Sex: Female
  Weight: 164.41 kg

DRUGS (1)
  1. IDHIFA [Suspect]
     Active Substance: ENASIDENIB MESYLATE
     Indication: Non-Hodgkin^s lymphoma
     Route: 048
     Dates: start: 20241008

REACTIONS (1)
  - Hospitalisation [Unknown]
